FAERS Safety Report 18367218 (Version 1)
Quarter: 2020Q4

REPORT INFORMATION
  Report Type: Report from Study
  Country: US (occurrence: US)
  Receive Date: 20201009
  Receipt Date: 20201009
  Transmission Date: 20210114
  Serious: Yes (Death, Hospitalization)
  Sender: FDA-Public Use
  Company Number: US-ASTRAZENECA-2020SF25961

PATIENT
  Sex: Male
  Weight: 61.2 kg

DRUGS (2)
  1. STEROID [Concomitant]
     Active Substance: UNSPECIFIED INGREDIENT
     Indication: APPETITE DISORDER
  2. TAGRISSO [Suspect]
     Active Substance: OSIMERTINIB
     Indication: LUNG NEOPLASM MALIGNANT
     Route: 048
     Dates: start: 202007

REACTIONS (5)
  - Weight decreased [Unknown]
  - Appetite disorder [Unknown]
  - Pneumonia [Fatal]
  - Dyspnoea [Fatal]
  - Toxicity to various agents [Fatal]
